FAERS Safety Report 8826724 (Version 13)
Quarter: 2013Q2

REPORT INFORMATION
  Report Type: Spontaneous
  Country: US (occurrence: US)
  Receive Date: 20121005
  Receipt Date: 20130627
  Transmission Date: 20140414
  Serious: Yes (Death, Life-Threatening, Hospitalization)
  Sender: FDA-Public Use
  Company Number: US-GLAXOSMITHKLINE-A0976456A

PATIENT
  Age: 28 Year
  Sex: Female
  Weight: 44.5 kg

DRUGS (8)
  1. FLOLAN [Suspect]
     Indication: PULMONARY ARTERIAL HYPERTENSION
     Dosage: 21NGKM CONTINUOUS
     Route: 042
     Dates: start: 20120420
  2. COREG [Concomitant]
  3. ALDACTONE [Concomitant]
  4. LASIX [Concomitant]
  5. SILDENAFIL [Concomitant]
  6. WARFARIN [Concomitant]
  7. DIGOXIN [Concomitant]
  8. REVATIO [Concomitant]

REACTIONS (45)
  - Ascites [Unknown]
  - Loss of consciousness [Recovered/Resolved]
  - Device related infection [Unknown]
  - Respiratory tract infection [Recovered/Resolved]
  - Catheter site rash [Unknown]
  - Rash [Recovered/Resolved]
  - Nausea [Unknown]
  - Vomiting [Recovered/Resolved]
  - Pain in jaw [Recovered/Resolved]
  - Headache [Recovered/Resolved]
  - Catheter site pain [Recovered/Resolved]
  - Catheter site swelling [Recovered/Resolved]
  - Pain in extremity [Recovered/Resolved]
  - Local swelling [Recovered/Resolved]
  - Pyrexia [Recovered/Resolved]
  - Feeling cold [Recovered/Resolved]
  - Cyanosis [Recovered/Resolved]
  - Blood pressure decreased [Recovered/Resolved]
  - Syncope [Recovered/Resolved]
  - Hypoaesthesia [Recovered/Resolved]
  - Rash pruritic [Recovered/Resolved]
  - Catheter site inflammation [Recovered/Resolved]
  - Burning sensation [Recovered/Resolved]
  - Catheter site erythema [Recovered/Resolved]
  - Diarrhoea [Recovered/Resolved]
  - Chest pain [Recovered/Resolved]
  - Pleural effusion [Unknown]
  - Respiratory rate increased [Recovered/Resolved]
  - Abdominal pain [Unknown]
  - Weight increased [Unknown]
  - Increased upper airway secretion [Recovered/Resolved]
  - Chills [Recovered/Resolved]
  - Pain [Recovered/Resolved]
  - Fatigue [Recovered/Resolved]
  - Pulse abnormal [Recovered/Resolved]
  - Abdominal discomfort [Unknown]
  - Oedema [Unknown]
  - Night sweats [Unknown]
  - Vomiting [Unknown]
  - Chest pain [Unknown]
  - Lip discolouration [Unknown]
  - Cardio-respiratory arrest [Unknown]
  - Blood pressure decreased [Unknown]
  - Mydriasis [Unknown]
  - Death [Fatal]
